FAERS Safety Report 20834542 (Version 1)
Quarter: 2022Q2

REPORT INFORMATION
  Report Type: Spontaneous
  Country: US (occurrence: US)
  Receive Date: 20220516
  Receipt Date: 20220516
  Transmission Date: 20220720
  Serious: Yes (Other)
  Sender: FDA-Public Use
  Company Number: US-PURDUE PHARMA-USA-2022-0293722

PATIENT
  Sex: Female

DRUGS (1)
  1. DOCUSATE SODIUM\SENNOSIDES [Suspect]
     Active Substance: DOCUSATE SODIUM\SENNOSIDES
     Indication: Product used for unknown indication
     Dosage: 4 TABLET, 2 TABLETS AT 11AM, 2 MORE TABLETS AT 12:30 PM
     Route: 048

REACTIONS (2)
  - Faecaloma [Unknown]
  - Faeces hard [Unknown]
